FAERS Safety Report 7213642-5 (Version None)
Quarter: 2011Q1

REPORT INFORMATION
  Report Type: 
  Country: None (occurrence: None)
  Receive Date: 20110106
  Receipt Date: 20100922
  Transmission Date: 20110831
  Serious: Yes (Disabling)
  Sender: FDA-Public Use
  Company Number: US-ASTRAZENECA-2010SE44673

PATIENT
  Age: 22 Year
  Sex: Female
  Weight: 60.5 kg

DRUGS (54)
  1. SEROQUEL [Suspect]
     Indication: AGITATION
     Route: 048
     Dates: start: 20100401, end: 20100901
  2. SEROQUEL [Suspect]
     Route: 048
     Dates: start: 20100917
  3. SEROQUEL [Suspect]
     Route: 048
     Dates: start: 20100917
  4. TACROLIMUS [Concomitant]
     Indication: PROPHYLAXIS AGAINST TRANSPLANT REJECTION
  5. NEURONTIN [Concomitant]
  6. SEROQUEL [Suspect]
     Route: 048
     Dates: start: 20100901
  7. CELLCEPT [Concomitant]
     Indication: PROPHYLAXIS AGAINST TRANSPLANT REJECTION
  8. LYRICA [Concomitant]
  9. SEROQUEL [Suspect]
     Route: 048
     Dates: start: 20100901
  10. SEROQUEL [Suspect]
     Route: 048
     Dates: start: 20100823
  11. SEROQUEL [Suspect]
     Route: 048
     Dates: start: 20100823
  12. SEROQUEL [Suspect]
     Route: 048
     Dates: start: 20100801
  13. VALIUM [Concomitant]
     Dates: start: 20100917
  14. NEURONTIN [Concomitant]
  15. MORPHINE [Concomitant]
     Route: 042
     Dates: start: 20100701
  16. SEROQUEL [Suspect]
     Route: 048
     Dates: start: 20100801
  17. SEROQUEL [Suspect]
     Route: 048
     Dates: start: 20100801
  18. SEROQUEL [Suspect]
     Route: 048
     Dates: start: 20100823
  19. KEPPRA [Concomitant]
     Indication: CONVULSION
  20. PREDNISONE [Concomitant]
  21. VALIUM [Concomitant]
  22. VALIUM [Concomitant]
     Route: 030
     Dates: start: 20100701
  23. PROGRAF [Concomitant]
  24. FENTANYL [Concomitant]
     Route: 042
  25. SEROQUEL [Suspect]
     Route: 048
     Dates: start: 20100901
  26. SEROQUEL [Suspect]
     Route: 048
     Dates: start: 20100901
  27. SEROQUEL [Suspect]
     Route: 048
     Dates: start: 20100609
  28. SEROQUEL [Suspect]
     Route: 048
     Dates: start: 20100901
  29. SEROQUEL [Suspect]
     Route: 048
     Dates: start: 20100802
  30. SEROQUEL [Suspect]
     Route: 048
     Dates: start: 20100917
  31. ZOLOFT [Concomitant]
  32. SEROQUEL [Suspect]
     Route: 048
     Dates: start: 20100609
  33. SEROQUEL [Suspect]
     Route: 048
     Dates: start: 20100823
  34. SEROQUEL [Suspect]
     Route: 048
     Dates: start: 20100801
  35. SEROQUEL [Suspect]
     Route: 048
     Dates: start: 20100801
  36. SEROQUEL [Suspect]
     Route: 048
     Dates: start: 20100823
  37. SEROQUEL [Suspect]
     Route: 048
     Dates: start: 20100917
  38. VALIUM [Concomitant]
  39. NEURONTIN [Concomitant]
  40. SEROQUEL [Suspect]
     Indication: SLEEP DISORDER
     Route: 048
     Dates: start: 20100401, end: 20100901
  41. SEROQUEL [Suspect]
     Indication: INSOMNIA
     Route: 048
     Dates: start: 20100401, end: 20100901
  42. SEROQUEL [Suspect]
     Route: 048
     Dates: start: 20100802
  43. SEROQUEL [Suspect]
     Route: 048
     Dates: start: 20100823
  44. VALIUM [Concomitant]
  45. MIDRIN [Concomitant]
     Indication: MIGRAINE
  46. TRAZODONE HCL [Concomitant]
  47. SEROQUEL [Suspect]
     Route: 048
     Dates: start: 20100609
  48. SEROQUEL [Suspect]
     Route: 048
     Dates: start: 20100901
  49. SEROQUEL [Suspect]
     Route: 048
     Dates: start: 20100802
  50. SEROQUEL [Suspect]
     Route: 048
     Dates: start: 20100801
  51. SEROQUEL [Suspect]
     Route: 048
     Dates: start: 20100917
  52. SEROQUEL [Suspect]
     Route: 048
     Dates: start: 20100917
  53. VALIUM [Concomitant]
  54. SUBOXONE [Concomitant]

REACTIONS (38)
  - DISTURBANCE IN ATTENTION [None]
  - SLEEP DISORDER [None]
  - MIGRAINE [None]
  - HYPERCALCAEMIA [None]
  - HYPERSOMNIA [None]
  - DRUG INEFFECTIVE [None]
  - EYE PAIN [None]
  - BIPOLAR DISORDER [None]
  - MEMORY IMPAIRMENT [None]
  - PAIN IN EXTREMITY [None]
  - IRRITABILITY [None]
  - DRUG DEPENDENCE [None]
  - TEMPOROMANDIBULAR JOINT SYNDROME [None]
  - HEAD INJURY [None]
  - SEDATION [None]
  - HEADACHE [None]
  - CRYING [None]
  - DECREASED APPETITE [None]
  - HOT FLUSH [None]
  - FLANK PAIN [None]
  - NEURALGIA [None]
  - MYOFASCIAL PAIN SYNDROME [None]
  - FACIAL PAIN [None]
  - ANXIETY [None]
  - PAIN [None]
  - DIZZINESS [None]
  - DIARRHOEA [None]
  - VOMITING [None]
  - COMPLEX REGIONAL PAIN SYNDROME [None]
  - DRUG WITHDRAWAL SYNDROME [None]
  - TACHYPHRENIA [None]
  - EMOTIONAL DISORDER [None]
  - NECK PAIN [None]
  - APHAGIA [None]
  - URINARY TRACT INFECTION [None]
  - TREMOR [None]
  - INSOMNIA [None]
  - ERUCTATION [None]
